FAERS Safety Report 23679350 (Version 1)
Quarter: 2024Q1

REPORT INFORMATION
  Report Type: Spontaneous
  Country: US (occurrence: US)
  Receive Date: 20240327
  Receipt Date: 20240327
  Transmission Date: 20240410
  Serious: No
  Sender: FDA-Public Use
  Company Number: US-MYLANLABS-2024M1023901

PATIENT
  Sex: Female
  Weight: 81.65 kg

DRUGS (1)
  1. ESTRADIOL TRANSDERMAL SYSTEM [Suspect]
     Active Substance: ESTRADIOL
     Indication: Hormone replacement therapy
     Dosage: 0.025 MILLIGRAM, QD (ONCE WEEKLY)
     Route: 062

REACTIONS (3)
  - Off label use [Unknown]
  - Product storage error [Unknown]
  - Product adhesion issue [Unknown]
